FAERS Safety Report 12685054 (Version 7)
Quarter: 2016Q4

REPORT INFORMATION
  Report Type: Report from Study
  Country: US (occurrence: US)
  Receive Date: 20160825
  Receipt Date: 20161129
  Transmission Date: 20170207
  Serious: Yes (Hospitalization)
  Sender: FDA-Public Use
  Company Number: US-JNJFOC-20160816666

PATIENT
  Age: 33 Year
  Sex: Female
  Weight: 69 kg

DRUGS (10)
  1. TRABECTEDIN [Suspect]
     Active Substance: TRABECTEDIN
     Indication: SARCOMA
     Dosage: CYCLE 17, 2.112 MG EVERY 3 WEEKS 24 HOUR INFUSION
     Route: 042
     Dates: start: 20150408
  2. TRABECTEDIN [Suspect]
     Active Substance: TRABECTEDIN
     Indication: SARCOMA
     Dosage: CYCLE 17, 2.112 MG EVERY 3 WEEKS 24 HOUR INFUSION
     Route: 042
     Dates: start: 20160121, end: 20160130
  3. DELTASON [Concomitant]
     Active Substance: PREDNISONE
     Route: 048
     Dates: start: 20150430
  4. TRABECTEDIN [Suspect]
     Active Substance: TRABECTEDIN
     Indication: SARCOMA
     Dosage: CYCLE 17, 2.112 MG EVERY 3 WEEKS 24 HOUR INFUSION
     Route: 042
     Dates: start: 20150707, end: 20151001
  5. TRABECTEDIN [Suspect]
     Active Substance: TRABECTEDIN
     Indication: SARCOMA
     Dosage: CYCLE 17, 2.112 MG EVERY 3 WEEKS 24 HOUR INFUSION
     Route: 042
     Dates: start: 20151203, end: 20151203
  6. TRABECTEDIN [Suspect]
     Active Substance: TRABECTEDIN
     Indication: SARCOMA
     Route: 042
     Dates: start: 20160809, end: 20160810
  7. VOTRIENT [Concomitant]
     Active Substance: PAZOPANIB HYDROCHLORIDE
     Route: 065
     Dates: start: 201402
  8. RESTORIL [Concomitant]
     Active Substance: TEMAZEPAM
     Indication: PRODUCT USED FOR UNKNOWN INDICATION
     Dosage: 1 CAPSULE AT BEDTIME.
     Route: 048
     Dates: end: 20160815
  9. LIDOCAINE. [Concomitant]
     Active Substance: LIDOCAINE
     Indication: PAIN
     Dosage: APPLIED TO AFFECTED AREA FOR PAIN.
     Route: 065
  10. ZOFRAN [Concomitant]
     Active Substance: ONDANSETRON HYDROCHLORIDE
     Indication: NAUSEA
     Dosage: EVERY EIGHT HOURS AND AT BED TIME.
     Route: 048
     Dates: end: 20160815

REACTIONS (9)
  - Device related infection [Not Recovered/Not Resolved]
  - Wound infection staphylococcal [Recovered/Resolved]
  - Staphylococcal osteomyelitis [Recovering/Resolving]
  - Anaemia [Recovered/Resolved]
  - Furuncle [Recovering/Resolving]
  - Febrile neutropenia [Recovered/Resolved]
  - Thrombocytopenia [Recovered/Resolved]
  - Fungaemia [Recovering/Resolving]
  - Cellulitis [Recovering/Resolving]

NARRATIVE: CASE EVENT DATE: 20160816
